FAERS Safety Report 14784104 (Version 2)
Quarter: 2018Q2

REPORT INFORMATION
  Report Type: Spontaneous
  Country: US (occurrence: US)
  Receive Date: 20180420
  Receipt Date: 20180430
  Transmission Date: 20180711
  Serious: No
  Sender: FDA-Public Use
  Company Number: US-BAYER-2018-076542

PATIENT
  Age: 62 Year
  Sex: Female

DRUGS (1)
  1. GADAVIST [Suspect]
     Active Substance: GADOBUTROL
     Dosage: 10 ML, ONCE
     Route: 042

REACTIONS (7)
  - Chest pain [None]
  - Eye swelling [None]
  - Dizziness [None]
  - Headache [None]
  - Pruritus [None]
  - Urticaria [None]
  - Tremor [None]
